FAERS Safety Report 26048000 (Version 2)
Quarter: 2025Q4

REPORT INFORMATION
  Report Type: Report from Study
  Country: US (occurrence: US)
  Receive Date: 20251114
  Receipt Date: 20251219
  Transmission Date: 20260117
  Serious: No
  Sender: MALLINCKRODT
  Company Number: US-MALLINCKRODT-MNK202507091

PATIENT
  Sex: Female

DRUGS (1)
  1. CORTICOTROPIN [Suspect]
     Active Substance: CORTICOTROPIN
     Indication: Dermatitis
     Dosage: UNKNOWN

REACTIONS (3)
  - Injection site swelling [Recovered/Resolved]
  - Injection site urticaria [Not Recovered/Not Resolved]
  - Reaction to excipient [Unknown]
